FAERS Safety Report 14812520 (Version 2)
Quarter: 2018Q2

REPORT INFORMATION
  Report Type: Report from Study
  Country: None (occurrence: US)
  Receive Date: 20180425
  Receipt Date: 20180524
  Transmission Date: 20180711
  Serious: Yes (Other)
  Sender: FDA-Public Use
  Company Number: US-ABBVIE-18K-163-2332854-00

PATIENT
  Age: 89 Year
  Sex: Female
  Weight: 48.12 kg

DRUGS (1)
  1. HUMIRA [Suspect]
     Active Substance: ADALIMUMAB
     Indication: CROHN^S DISEASE
     Route: 058

REACTIONS (5)
  - Faeces hard [Unknown]
  - Clostridium difficile infection [Not Recovered/Not Resolved]
  - Intestinal obstruction [Recovered/Resolved]
  - Dermatitis infected [Recovering/Resolving]
  - Nail infection [Recovering/Resolving]

NARRATIVE: CASE EVENT DATE: 2017
